FAERS Safety Report 9486839 (Version 1)
Quarter: 2013Q3

REPORT INFORMATION
  Report Type: Spontaneous
  Country: US (occurrence: None)
  Receive Date: 20130827
  Receipt Date: 20130827
  Transmission Date: 20140515
  Serious: Yes (Other)
  Sender: FDA-Public Use
  Company Number: 163-20785-13045066

PATIENT
  Age: 80 Year
  Sex: Female

DRUGS (3)
  1. THALOMID [Suspect]
     Indication: PLASMA CELL MYELOMA
     Route: 048
     Dates: start: 200807
  2. MELPHALAN [Suspect]
  3. PREDNISONE [Concomitant]

REACTIONS (3)
  - Skin reaction [None]
  - Plasma cell myeloma [None]
  - Squamous cell carcinoma [None]
